FAERS Safety Report 4460084-1 (Version None)
Quarter: 2004Q3

REPORT INFORMATION
  Report Type: 
  Country: None (occurrence: None)
  Receive Date: 20040928
  Receipt Date: 20031203
  Transmission Date: 20050211
  Serious: No
  Sender: FDA-Public Use
  Company Number: US-GLAXOSMITHKLINE-A0441771A

PATIENT
  Age: 55 Year
  Sex: Female

DRUGS (10)
  1. SEREVENT [Suspect]
     Dosage: 1PUFF TWICE PER DAY
     Route: 055
     Dates: start: 20030701
  2. AZMACORT [Concomitant]
  3. PROVENTIL [Concomitant]
  4. ATROVENT [Concomitant]
  5. TILADE [Concomitant]
  6. LANOXIN [Concomitant]
     Route: 048
  7. VERELAN [Concomitant]
  8. RELAFEN [Concomitant]
  9. LORCET-HD [Concomitant]
  10. ANTIVERT [Concomitant]

REACTIONS (1)
  - DYSPNOEA [None]
